FAERS Safety Report 6889476-8 (Version None)
Quarter: 2010Q3

REPORT INFORMATION
  Report Type: 
  Country: None (occurrence: None)
  Receive Date: 20100730
  Receipt Date: 20080303
  Transmission Date: 20110219
  Serious: No
  Sender: FDA-Public Use
  Company Number: US-PFIZER INC-2008020987

PATIENT
  Sex: Female
  Weight: 57.727 kg

DRUGS (2)
  1. LIPITOR [Suspect]
     Indication: BLOOD CHOLESTEROL INCREASED
     Dates: start: 20080214
  2. NORVASC [Concomitant]
     Indication: BLOOD PRESSURE ABNORMAL

REACTIONS (4)
  - ABDOMINAL PAIN UPPER [None]
  - EYE DISORDER [None]
  - FLATULENCE [None]
  - SOMNOLENCE [None]
